FAERS Safety Report 6382828-4 (Version None)
Quarter: 2009Q3

REPORT INFORMATION
  Report Type: 
  Country: None (occurrence: None)
  Receive Date: 20090930
  Receipt Date: 20090923
  Transmission Date: 20100115
  Serious: Yes (Disabling, Other)
  Sender: FDA-Public Use
  Company Number: FR-JNJFOC-20090804573

PATIENT
  Sex: Male
  Weight: 42 kg

DRUGS (2)
  1. RISPERDAL [Suspect]
     Indication: AUTISM
     Route: 048
  2. TERCIAN [Concomitant]
     Route: 048

REACTIONS (2)
  - BULIMIA NERVOSA [None]
  - OFF LABEL USE [None]
